FAERS Safety Report 6094765-3 (Version None)
Quarter: 2009Q1

REPORT INFORMATION
  Report Type: 
  Country: None (occurrence: None)
  Receive Date: 20090225
  Receipt Date: 20081020
  Transmission Date: 20090719
  Serious: Yes (Disabling)
  Sender: FDA-Public Use
  Company Number: 1-16748141

PATIENT
  Sex: Male

DRUGS (1)
  1. PREDNISONE [Suspect]
     Indication: THYROID DISORDER
     Dosage: 40 MG ONCE DAILY, ORAL
     Route: 048
     Dates: start: 20060307, end: 20060322

REACTIONS (3)
  - ACTIVITIES OF DAILY LIVING IMPAIRED [None]
  - CHORIORETINOPATHY [None]
  - DEFORMITY [None]
